FAERS Safety Report 15270147 (Version 1)
Quarter: 2018Q3

REPORT INFORMATION
  Report Type: Spontaneous
  Country: US (occurrence: US)
  Receive Date: 20180726
  Receipt Date: 20180726
  Transmission Date: 20181010
  Serious: Yes (Hospitalization)
  Sender: FDA-Public Use
  Company Number: None

PATIENT
  Age: 54 Year
  Sex: Male

DRUGS (7)
  1. ENBREL [Suspect]
     Active Substance: ETANERCEPT
     Indication: PRODUCT USED FOR UNKNOWN INDICATION
     Route: 058
     Dates: start: 20180422
  2. ESCITALOPRAM 10MG [Concomitant]
     Active Substance: ESCITALOPRAM OXALATE
  3. BUPROPION XL 300MG [Concomitant]
     Active Substance: BUPROPION
  4. MELOXICAM 15MG [Concomitant]
     Active Substance: MELOXICAM
  5. TIZANIDINE 4MG [Concomitant]
     Active Substance: TIZANIDINE
  6. BUSPIRONE [Concomitant]
     Active Substance: BUSPIRONE HYDROCHLORIDE
  7. GABAPENTIN 100MG [Concomitant]
     Active Substance: GABAPENTIN

REACTIONS (2)
  - Syncope [None]
  - Seizure [None]

NARRATIVE: CASE EVENT DATE: 20180610
